FAERS Safety Report 5590220-5 (Version None)
Quarter: 2008Q1

REPORT INFORMATION
  Report Type: 
  Country: None (occurrence: None)
  Receive Date: 20080114
  Receipt Date: 20080103
  Transmission Date: 20080703
  Serious: Yes (Hospitalization)
  Sender: FDA-Public Use
  Company Number: FR-ASTRAZENECA-2008CG00011

PATIENT
  Age: 4198 Week

DRUGS (7)
  1. DIPRIVAN [Suspect]
     Indication: ANAESTHESIA
     Route: 042
     Dates: start: 20070430, end: 20070430
  2. SUFENTA [Concomitant]
     Dates: start: 20070430, end: 20070430
  3. MIDAZOLAM HCL [Concomitant]
     Dates: start: 20070430, end: 20070430
  4. PERFALGAN [Concomitant]
     Dates: start: 20070428, end: 20070430
  5. PROFENID [Concomitant]
     Dates: start: 20070428, end: 20070501
  6. SPASFON [Concomitant]
  7. BETADINE [Concomitant]

REACTIONS (1)
  - TOXIC SKIN ERUPTION [None]
